FAERS Safety Report 10982110 (Version 3)
Quarter: 2015Q2

REPORT INFORMATION
  Report Type: Report from Study
  Country: JP (occurrence: JP)
  Receive Date: 20150403
  Receipt Date: 20150514
  Transmission Date: 20150821
  Serious: Yes (Hospitalization)
  Sender: FDA-Public Use
  Company Number: JP-PFIZER INC-2015109379

PATIENT
  Age: 70 Year
  Sex: Female
  Weight: 45 kg

DRUGS (13)
  1. MEIACT MS [Concomitant]
     Active Substance: CEFDITOREN PIVOXIL
     Indication: OTITIS MEDIA
     Dosage: 100 MG, 3X/DAY
     Route: 048
     Dates: start: 20130408, end: 20130415
  2. FLOMOX [Concomitant]
     Active Substance: CEFCAPENE PIVOXIL HYDROCHLORIDE HYDRATE
     Indication: OTITIS MEDIA
  3. KLARICID [Concomitant]
     Active Substance: CLARITHROMYCIN
     Indication: OTITIS MEDIA
  4. CRIZOTINIB [Suspect]
     Active Substance: CRIZOTINIB
     Indication: NON-SMALL CELL LUNG CANCER
     Dosage: 250 MG, 2X/DAY
     Route: 048
     Dates: start: 20121121, end: 20130419
  5. LYRICA [Concomitant]
     Active Substance: PREGABALIN
     Dosage: 75 MG, 2X/DAY
     Route: 048
     Dates: start: 20130304, end: 20130419
  6. MAGMITT [Concomitant]
     Active Substance: MAGNESIUM OXIDE
     Dosage: 660 MG, 1X/DAY
     Route: 048
     Dates: end: 20130419
  7. FAMOTIDINE. [Concomitant]
     Active Substance: FAMOTIDINE
     Dosage: 10 MG, 1X/DAY
     Route: 048
     Dates: end: 20130419
  8. LOXONIN [Concomitant]
     Active Substance: LOXOPROFEN SODIUM
     Dosage: 50 MG, DAILY
     Route: 061
     Dates: start: 20130220, end: 20130417
  9. GENINAX [Concomitant]
     Active Substance: GARENOXACIN MESYLATE
     Dosage: 400 MG, DAILY
     Route: 048
     Dates: start: 20130416, end: 20130417
  10. LOXONIN [Concomitant]
     Active Substance: LOXOPROFEN SODIUM
     Dosage: 60 MG, 2X/DAY
     Route: 048
     Dates: start: 20130220, end: 20130417
  11. SELBEX [Concomitant]
     Active Substance: TEPRENONE
     Dosage: 50 MG, 2X/DAY
     Route: 048
     Dates: start: 20130220, end: 20130417
  12. XYZAL [Concomitant]
     Active Substance: LEVOCETIRIZINE DIHYDROCHLORIDE
     Dosage: 5 MG, 1X/DAY
     Route: 048
     Dates: start: 20130304, end: 20130419
  13. THYRADIN S [Concomitant]
     Active Substance: LEVOTHYROXINE SODIUM
     Dosage: 50 ?G, 1X/DAY
     Route: 048

REACTIONS (1)
  - Disorientation [Recovered/Resolved]

NARRATIVE: CASE EVENT DATE: 20130419
